FAERS Safety Report 26046317 (Version 3)
Quarter: 2025Q4

REPORT INFORMATION
  Report Type: Report from Study
  Country: CN (occurrence: CN)
  Receive Date: 20251114
  Receipt Date: 20251224
  Transmission Date: 20260118
  Serious: Yes (Other)
  Sender: ROCHE
  Company Number: CN-ROCHE-10000190548

PATIENT
  Age: 57 Year
  Sex: Female
  Weight: 57 kg

DRUGS (62)
  1. POLATUZUMAB VEDOTIN [Suspect]
     Active Substance: POLATUZUMAB VEDOTIN
     Indication: Diffuse large B-cell lymphoma
     Route: 041
     Dates: start: 20241217, end: 20241217
  2. POLATUZUMAB VEDOTIN [Suspect]
     Active Substance: POLATUZUMAB VEDOTIN
     Route: 041
     Dates: start: 20250109, end: 20250109
  3. POLATUZUMAB VEDOTIN [Suspect]
     Active Substance: POLATUZUMAB VEDOTIN
     Route: 041
     Dates: start: 20250204, end: 20250204
  4. RITUXIMAB [Suspect]
     Active Substance: RITUXIMAB
     Indication: Diffuse large B-cell lymphoma
     Route: 041
     Dates: end: 20241220
  5. EPIRUBICIN HYDROCHLORIDE [Suspect]
     Active Substance: EPIRUBICIN HYDROCHLORIDE
     Indication: Product used for unknown indication
     Route: 041
     Dates: start: 20241219, end: 20241219
  6. EPIRUBICIN [Suspect]
     Active Substance: EPIRUBICIN
     Indication: Diffuse large B-cell lymphoma
     Route: 041
     Dates: start: 20241218, end: 20241219
  7. METHYLPREDNISOLONE SODIUM SUCCINATE [Suspect]
     Active Substance: METHYLPREDNISOLONE SODIUM SUCCINATE
     Indication: Diffuse large B-cell lymphoma
     Route: 041
     Dates: end: 20241220
  8. DOXORUBICIN [Suspect]
     Active Substance: DOXORUBICIN
     Indication: Diffuse large B-cell lymphoma
     Route: 041
     Dates: end: 20250111
  9. DOXORUBICIN [Suspect]
     Active Substance: DOXORUBICIN
     Dates: start: 20250204, end: 20250204
  10. CYCLOPHOSPHAMIDE [Suspect]
     Active Substance: CYCLOPHOSPHAMIDE
     Indication: Diffuse large B-cell lymphoma
     Route: 041
     Dates: start: 20250110, end: 20250110
  11. CYCLOPHOSPHAMIDE [Suspect]
     Active Substance: CYCLOPHOSPHAMIDE
     Route: 041
     Dates: start: 20250111, end: 20250112
  12. CYCLOPHOSPHAMIDE [Suspect]
     Active Substance: CYCLOPHOSPHAMIDE
     Route: 041
     Dates: start: 20241218, end: 20241218
  13. CYCLOPHOSPHAMIDE [Suspect]
     Active Substance: CYCLOPHOSPHAMIDE
     Route: 041
     Dates: start: 20241219, end: 20241219
  14. CYCLOPHOSPHAMIDE [Suspect]
     Active Substance: CYCLOPHOSPHAMIDE
     Route: 041
     Dates: start: 20250204, end: 20250204
  15. PREDNISOLONE ACETATE [Suspect]
     Active Substance: PREDNISOLONE ACETATE
     Indication: Diffuse large B-cell lymphoma
     Route: 041
     Dates: end: 20250205
  16. VINCRISTINE [Suspect]
     Active Substance: VINCRISTINE
     Indication: Product used for unknown indication
  17. LACTULOSE [Concomitant]
     Active Substance: LACTULOSE
     Route: 048
     Dates: start: 20241217, end: 20241218
  18. LACTULOSE [Concomitant]
     Active Substance: LACTULOSE
     Route: 048
     Dates: start: 20241219, end: 20241222
  19. LACTULOSE [Concomitant]
     Active Substance: LACTULOSE
     Route: 048
     Dates: start: 20241221, end: 20241223
  20. SODIUM BICARBONATE [Concomitant]
     Active Substance: SODIUM BICARBONATE
     Route: 041
     Dates: start: 20241217, end: 20241222
  21. SODIUM BICARBONATE [Concomitant]
     Active Substance: SODIUM BICARBONATE
     Route: 041
     Dates: start: 20250109, end: 20250113
  22. INSULIN HUMAN [Concomitant]
     Active Substance: INSULIN HUMAN
     Route: 041
     Dates: start: 20241217, end: 20241222
  23. INSULIN HUMAN [Concomitant]
     Active Substance: INSULIN HUMAN
     Route: 041
     Dates: start: 20250108, end: 20250113
  24. ESOMEPRAZOLE SODIUM [Concomitant]
     Active Substance: ESOMEPRAZOLE SODIUM
     Route: 041
     Dates: start: 20241217, end: 20241223
  25. ESOMEPRAZOLE SODIUM [Concomitant]
     Active Substance: ESOMEPRAZOLE SODIUM
     Route: 048
     Dates: start: 20250110, end: 20250110
  26. ESOMEPRAZOLE SODIUM [Concomitant]
     Active Substance: ESOMEPRAZOLE SODIUM
     Route: 048
     Dates: start: 20250109
  27. Hydrotalcite chewable tablets [Concomitant]
     Route: 048
     Dates: start: 20241217, end: 20241223
  28. Hydrotalcite chewable tablets [Concomitant]
     Route: 048
     Dates: start: 20250109
  29. Hydrotalcite chewable tablets [Concomitant]
     Route: 048
     Dates: start: 20250201, end: 20250201
  30. PROMETHAZINE [Concomitant]
     Active Substance: PROMETHAZINE HYDROCHLORIDE
     Route: 030
     Dates: start: 20241217, end: 20241217
  31. PROMETHAZINE [Concomitant]
     Active Substance: PROMETHAZINE HYDROCHLORIDE
     Route: 041
     Dates: start: 20241220, end: 20241220
  32. PROMETHAZINE [Concomitant]
     Active Substance: PROMETHAZINE HYDROCHLORIDE
     Route: 030
     Dates: start: 20250109, end: 20250109
  33. PROMETHAZINE [Concomitant]
     Active Substance: PROMETHAZINE HYDROCHLORIDE
     Route: 041
     Dates: start: 20250112, end: 20250112
  34. DIPHENHYDRAMINE [Concomitant]
     Active Substance: DIPHENHYDRAMINE
     Route: 048
     Dates: start: 20241217, end: 20241217
  35. DIPHENHYDRAMINE [Concomitant]
     Active Substance: DIPHENHYDRAMINE
     Route: 041
     Dates: start: 20250109, end: 20250109
  36. DIPHENHYDRAMINE [Concomitant]
     Active Substance: DIPHENHYDRAMINE
     Route: 048
     Dates: start: 20250112, end: 20250112
  37. Tropisetron hydrochloride for injection [Concomitant]
     Route: 041
     Dates: start: 20241218, end: 20241219
  38. Tropisetron hydrochloride for injection [Concomitant]
     Route: 041
     Dates: start: 20250110, end: 20250111
  39. DEXAMETHASONE SODIUM PHOSPHATE [Concomitant]
     Active Substance: DEXAMETHASONE SODIUM PHOSPHATE
     Route: 041
     Dates: start: 20241220, end: 20241220
  40. DEXAMETHASONE SODIUM PHOSPHATE [Concomitant]
     Active Substance: DEXAMETHASONE SODIUM PHOSPHATE
     Route: 041
     Dates: start: 20250112, end: 20250112
  41. ONDANSETRON [Concomitant]
     Active Substance: ONDANSETRON
     Route: 041
     Dates: start: 20241220, end: 20241220
  42. PALONOSETRON HYDROCHLORIDE [Concomitant]
     Active Substance: PALONOSETRON HYDROCHLORIDE
     Route: 041
     Dates: start: 20241220, end: 20241220
  43. PALONOSETRON HYDROCHLORIDE [Concomitant]
     Active Substance: PALONOSETRON HYDROCHLORIDE
     Route: 041
     Dates: start: 20241220, end: 20241220
  44. Carbazochrome sodium sulfonate  for injection [Concomitant]
     Route: 041
     Dates: start: 20241220, end: 20241220
  45. Carbazochrome sodium sulfonate  for injection [Concomitant]
     Route: 041
     Dates: start: 20241220, end: 20241220
  46. MAGNESIUM ASPARTATE\POTASSIUM ASPARTATE [Concomitant]
     Active Substance: MAGNESIUM ASPARTATE\POTASSIUM ASPARTATE
     Route: 048
     Dates: start: 20241220, end: 20241220
  47. ENTECAVIR [Concomitant]
     Active Substance: ENTECAVIR
     Route: 048
     Dates: start: 20250111, end: 20250113
  48. ENTECAVIR [Concomitant]
     Active Substance: ENTECAVIR
     Route: 041
     Dates: start: 20250201, end: 20250201
  49. ENTECAVIR [Concomitant]
     Active Substance: ENTECAVIR
     Route: 041
     Dates: start: 20241223, end: 20250201
  50. ESOMEPRAZOLE MAGNESIUM [Concomitant]
     Active Substance: ESOMEPRAZOLE MAGNESIUM
     Route: 048
     Dates: start: 20250109
  51. ESOMEPRAZOLE MAGNESIUM [Concomitant]
     Active Substance: ESOMEPRAZOLE MAGNESIUM
     Route: 048
     Dates: start: 20250201, end: 20250201
  52. POTASSIUM CHLORIDE [Concomitant]
     Active Substance: POTASSIUM CHLORIDE
     Route: 041
     Dates: start: 20250111, end: 20250111
  53. POLAPREZINC [Concomitant]
     Active Substance: POLAPREZINC
  54. POLAPREZINC [Concomitant]
     Active Substance: POLAPREZINC
     Dates: start: 20241217, end: 20241223
  55. Dexrazoxan for injection [Concomitant]
     Indication: Prophylaxis
     Route: 041
     Dates: start: 20241218, end: 20241218
  56. Dexrazoxan for injection [Concomitant]
     Route: 041
     Dates: start: 20241219, end: 20241219
  57. Dexrazoxan for injection [Concomitant]
     Route: 041
     Dates: start: 20250110, end: 20250111
  58. Clostridium butyricum Enterococcus triple viable tablets [Concomitant]
     Route: 048
     Dates: start: 20241221, end: 20241223
  59. POVIDONE-IODINE [Concomitant]
     Active Substance: POVIDONE-IODINE
  60. COMPOUND CHLORHEXIDINE GARGLE [Concomitant]
  61. LIDOCAINE HYDROCHLORIDE [Concomitant]
     Active Substance: LIDOCAINE HYDROCHLORIDE
  62. Pegylated recombinant human cell [Concomitant]

REACTIONS (5)
  - Hypocalcaemia [Recovered/Resolved]
  - Hypokalaemia [Recovered/Resolved]
  - Neutropenia [Recovered/Resolved]
  - Malaise [Recovered/Resolved]
  - Nausea [Recovered/Resolved]

NARRATIVE: CASE EVENT DATE: 20241219
